FAERS Safety Report 8215725-X (Version None)
Quarter: 2012Q1

REPORT INFORMATION
  Report Type: 
  Country: None (occurrence: None)
  Receive Date: 20120316
  Receipt Date: 20120308
  Transmission Date: 20120608
  Serious: Yes (Other)
  Sender: FDA-Public Use
  Company Number: CHPA2011US14678

PATIENT
  Age: 31 Year
  Sex: Female

DRUGS (1)
  1. KERI ORIGINAL [Suspect]
     Indication: DRY SKIN
     Dosage: UNK, PRN
     Route: 061
     Dates: end: 20110101

REACTIONS (6)
  - PRURITUS [None]
  - LIQUID PRODUCT PHYSICAL ISSUE [None]
  - PRODUCT COLOUR ISSUE [None]
  - PRODUCT CONTAMINATION PHYSICAL [None]
  - SKIN IRRITATION [None]
  - PRODUCT QUALITY ISSUE [None]
